FAERS Safety Report 10089196 (Version 1)
Quarter: 2014Q2

REPORT INFORMATION
  Report Type: Spontaneous
  Country: US (occurrence: None)
  Receive Date: 20140418
  Receipt Date: 20140418
  Transmission Date: 20141212
  Serious: No
  Sender: FDA-Public Use
  Company Number: None

PATIENT
  Age: 21 Year
  Sex: Female
  Weight: 55.34 kg

DRUGS (2)
  1. EFFEXOR XR 150MG PFIZER [Suspect]
     Indication: GENERALISED ANXIETY DISORDER
     Dosage: 2 PILLS (75MG EACH)  TWICE DAILY TAKEN BY MOUTH
     Route: 048
     Dates: start: 20140224, end: 20140416
  2. EFFEXOR XR 150MG PFIZER [Suspect]
     Indication: DEPRESSION
     Dosage: 2 PILLS (75MG EACH)  TWICE DAILY TAKEN BY MOUTH
     Route: 048
     Dates: start: 20140224, end: 20140416

REACTIONS (10)
  - Heart rate increased [None]
  - Dizziness [None]
  - Migraine [None]
  - Memory impairment [None]
  - Coordination abnormal [None]
  - Hyperhidrosis [None]
  - Fatigue [None]
  - Suicidal ideation [None]
  - Anxiety [None]
  - Depression [None]
